FAERS Safety Report 9832036 (Version 2)
Quarter: 2014Q2

REPORT INFORMATION
  Report Type: Spontaneous
  Country: US (occurrence: US)
  Receive Date: 20140121
  Receipt Date: 20140512
  Transmission Date: 20141212
  Serious: No
  Sender: FDA-Public Use
  Company Number: US-009507513-1401USA005525

PATIENT
  Age: 50 Year
  Sex: Female
  Weight: 171.88 kg

DRUGS (9)
  1. CLARITIN REDITABS 12HR [Suspect]
     Indication: LACRIMATION INCREASED
     Dosage: 5 MG, UNKNOWN
     Route: 048
  2. CLARITIN REDITABS 12HR [Suspect]
     Indication: EYE PRURITUS
  3. CLARITIN REDITABS 12HR [Suspect]
     Indication: PRURITUS GENERALISED
  4. CLARITIN REDITABS 12HR [Suspect]
     Indication: SEASONAL ALLERGY
  5. TEKTURNA [Concomitant]
     Indication: HYPERTENSION
     Dosage: UNK, UNKNOWN
  6. SYNTHROID [Concomitant]
     Indication: HYPOTHYROIDISM
     Dosage: UNK, UNKNOWN
  7. PERCOCET [Concomitant]
     Indication: ARTHRITIS
     Dosage: UNK, UNKNOWN
  8. KETOROLAC TROMETHAMINE [Concomitant]
     Indication: GASTROOESOPHAGEAL REFLUX DISEASE
     Dosage: UNK, UNKNOWN
  9. NEXIUM [Concomitant]
     Indication: PRODUCT USED FOR UNKNOWN INDICATION
     Dosage: UNK, UNKNOWN

REACTIONS (1)
  - Drug ineffective [Unknown]
